FAERS Safety Report 10176464 (Version 3)
Quarter: 2014Q2

REPORT INFORMATION
  Report Type: Report from Study
  Country: MT (occurrence: MT)
  Receive Date: 20140516
  Receipt Date: 20140623
  Transmission Date: 20141212
  Serious: Yes (Death)
  Sender: FDA-Public Use
  Company Number: MT-PFIZER INC-2014131729

PATIENT
  Age: 64 Year
  Sex: Female

DRUGS (11)
  1. CRIZOTINIB [Suspect]
     Indication: LUNG ADENOCARCINOMA METASTATIC
     Dosage: 250 MG, 2X/DAY
     Dates: start: 201204, end: 2014
  2. CRIZOTINIB [Suspect]
     Dosage: 250 MG, 1X/DAY
     Dates: start: 2014
  3. THYROXINE [Concomitant]
     Dosage: 50 MCG, 1X/DAY
  4. SIMVASTATIN [Concomitant]
     Dosage: 40 MG, 1X/DAY (NIGHT)
  5. LOSARTAN [Concomitant]
     Dosage: 50 MG, 2X/DAY
  6. ATENOLOL [Concomitant]
     Dosage: 50 MG, 2X/DAY
  7. AMLODIPINE [Concomitant]
     Dosage: 5 MG, 2X/DAY
  8. BUMETANIDE [Concomitant]
     Dosage: 1 MG, 1X/DAY
  9. METFORMIN [Concomitant]
     Dosage: 500 MG, 3X/DAY
  10. GLICLAZIDE [Concomitant]
     Dosage: 80 MG, 3X/DAY
  11. ENOXAPARIN [Concomitant]
     Indication: ANTICOAGULANT THERAPY
     Dosage: 120 MG, 1X/DAY
     Route: 058

REACTIONS (2)
  - Disease progression [Fatal]
  - Lung adenocarcinoma metastatic [Fatal]
